FAERS Safety Report 5708300-X (Version None)
Quarter: 2008Q2

REPORT INFORMATION
  Report Type: 
  Country: None (occurrence: None)
  Receive Date: 20080417
  Receipt Date: 20080409
  Transmission Date: 20081010
  Serious: Yes (Hospitalization)
  Sender: FDA-Public Use
  Company Number: US-ELI_LILLY_AND_COMPANY-US200802006425

PATIENT
  Sex: Female
  Weight: 103.86 kg

DRUGS (16)
  1. FORTEO [Suspect]
     Indication: OSTEOPOROSIS
     Dosage: 20 UG, DAILY (1/D)
     Dates: start: 20071219, end: 20080208
  2. FORTEO [Suspect]
     Dosage: 20 UG, DAILY (1/D)
     Dates: start: 20080201
  3. CALCIUM [Concomitant]
  4. VITAMIN D [Concomitant]
  5. ALBUTEROL [Concomitant]
     Route: 055
  6. PROTONIX [Concomitant]
  7. NASACORT [Concomitant]
  8. CYCLOBENZAPRINE HCL [Concomitant]
  9. DIOVAN [Concomitant]
  10. CELEBREX [Concomitant]
  11. ZETIA [Concomitant]
  12. COMBIVENT [Concomitant]
  13. PROAIR HFA [Concomitant]
  14. HYDROCHLOROTHIAZIDE [Concomitant]
  15. COZAAR [Concomitant]
  16. SKELAXIN [Concomitant]

REACTIONS (7)
  - BRONCHOPNEUMONIA [None]
  - CHRONIC OBSTRUCTIVE PULMONARY DISEASE [None]
  - HYPERGLYCAEMIA [None]
  - HYPERTENSION [None]
  - NAUSEA [None]
  - OSTEOPOROSIS [None]
  - RHEUMATOID ARTHRITIS [None]
